FAERS Safety Report 9421932 (Version 1)
Quarter: 2013Q3

REPORT INFORMATION
  Report Type: Spontaneous
  Country: US (occurrence: None)
  Receive Date: 20130724
  Receipt Date: 20130724
  Transmission Date: 20140515
  Serious: Yes (Hospitalization)
  Sender: FDA-Public Use
  Company Number: None

PATIENT
  Sex: Female

DRUGS (1)
  1. CARTIA XT [Suspect]
     Dosage: 240MG 1 DAILY ORAL ?FILL/SHIP DATE IS 6/21/13
     Route: 048

REACTIONS (6)
  - Drug hypersensitivity [None]
  - Lip swelling [None]
  - Pharyngeal oedema [None]
  - Rash [None]
  - Rash pruritic [None]
  - Pruritus [None]
